FAERS Safety Report 18813479 (Version 1)
Quarter: 2021Q1

REPORT INFORMATION
  Report Type: Spontaneous
  Country: DE (occurrence: DE)
  Receive Date: 20210201
  Receipt Date: 20210201
  Transmission Date: 20210419
  Serious: Yes (Other)
  Sender: FDA-Public Use
  Company Number: DE-ESPERIONTHERAPEUTICS-2021DEU00161

PATIENT
  Age: 70 Year
  Sex: Female

DRUGS (1)
  1. NILEMDO [Suspect]
     Active Substance: BEMPEDOIC ACID
     Indication: LOW DENSITY LIPOPROTEIN INCREASED
     Dosage: 180 MILLIGRAM, QD
     Route: 048
     Dates: start: 202101, end: 202101

REACTIONS (3)
  - Eye irritation [Recovered/Resolved]
  - Renal pain [Recovered/Resolved]
  - Sleep disorder [Recovered/Resolved]

NARRATIVE: CASE EVENT DATE: 202101
